FAERS Safety Report 13770485 (Version 1)
Quarter: 2017Q3

REPORT INFORMATION
  Report Type: Spontaneous
  Country: US (occurrence: US)
  Receive Date: 20170720
  Receipt Date: 20170720
  Transmission Date: 20171127
  Serious: No
  Sender: FDA-Public Use
  Company Number: None

PATIENT
  Age: 87 Year
  Sex: Female
  Weight: 57.66 kg

DRUGS (4)
  1. PREDNISONE. [Concomitant]
     Active Substance: PREDNISONE
  2. SYNTHROID [Suspect]
     Active Substance: LEVOTHYROXINE SODIUM
     Indication: THYROID DISORDER
     Dosage: 1 PILL DAILY 1 DAY MOUTH
     Route: 048
     Dates: start: 20170608
  3. TYNOL [Concomitant]
  4. RETINAVITES: (VIT) [Concomitant]

REACTIONS (2)
  - Dysphagia [None]
  - Product substitution issue [None]

NARRATIVE: CASE EVENT DATE: 20170610
